FAERS Safety Report 24827979 (Version 2)
Quarter: 2025Q1

REPORT INFORMATION
  Report Type: Spontaneous
  Country: US (occurrence: US)
  Receive Date: 20250109
  Receipt Date: 20250122
  Transmission Date: 20250408
  Serious: No
  Sender: SANOFI AVENTIS
  Company Number: US-SA-2025SA007577

PATIENT
  Age: 42 Year
  Sex: Male

DRUGS (2)
  1. DUPIXENT [Suspect]
     Active Substance: DUPILUMAB
     Indication: Dermatitis atopic
     Route: 058
     Dates: start: 20241118, end: 20241118
  2. DUPIXENT [Suspect]
     Active Substance: DUPILUMAB
     Indication: Eczema
     Dosage: 300, QOW
     Route: 058
     Dates: start: 202411

REACTIONS (8)
  - Nasal congestion [Unknown]
  - Insomnia [Unknown]
  - Dermatitis atopic [Unknown]
  - Skin disorder [Unknown]
  - Skin fissures [Unknown]
  - Skin haemorrhage [Unknown]
  - Therapeutic response shortened [Unknown]
  - Drug ineffective [Unknown]

NARRATIVE: CASE EVENT DATE: 20240101
